FAERS Safety Report 18076546 (Version 1)
Quarter: 2020Q3

REPORT INFORMATION
  Report Type: Spontaneous
  Country: CN (occurrence: CN)
  Receive Date: 20200727
  Receipt Date: 20200727
  Transmission Date: 20201103
  Serious: Yes (Hospitalization)
  Sender: FDA-Public Use
  Company Number: CN-GILEAD-2020-0483259

PATIENT
  Age: 25 Year
  Sex: Male

DRUGS (4)
  1. INTERFERON [Concomitant]
     Active Substance: INTERFERON
     Dosage: UNK
     Dates: start: 202005
  2. INTERFERON [Concomitant]
     Active Substance: INTERFERON
     Dosage: UNK
     Dates: start: 201912
  3. VEMLIDY [Suspect]
     Active Substance: TENOFOVIR ALAFENAMIDE FUMARATE
     Indication: HEPATITIS B
     Dosage: 1 DOSAGE FORM, QD
     Route: 048
     Dates: start: 201906, end: 201908
  4. VEMLIDY [Suspect]
     Active Substance: TENOFOVIR ALAFENAMIDE FUMARATE
     Dosage: UNK
     Route: 048

REACTIONS (4)
  - Anxiety [Recovered/Resolved]
  - Transaminases abnormal [Recovered/Resolved]
  - Product storage error [Unknown]
  - Depression [Recovered/Resolved]

NARRATIVE: CASE EVENT DATE: 201907
